FAERS Safety Report 8082682-9 (Version None)
Quarter: 2012Q1

REPORT INFORMATION
  Report Type: 
  Country: None (occurrence: None)
  Receive Date: 20120127
  Receipt Date: 20110224
  Transmission Date: 20120608
  Serious: Yes (Hospitalization)
  Sender: FDA-Public Use
  Company Number: US-ABBOTT-11P-163-0707558-00

PATIENT
  Sex: Female
  Weight: 90.8 kg

DRUGS (2)
  1. METHOTREXATE [Concomitant]
     Indication: PRODUCT USED FOR UNKNOWN INDICATION
     Route: 058
  2. HUMIRA [Suspect]
     Indication: LEUKOCYTOCLASTIC VASCULITIS
     Route: 058
     Dates: start: 20050101, end: 20110203

REACTIONS (4)
  - ASTHMA [None]
  - LUNG NEOPLASM [None]
  - PNEUMONIA [None]
  - ASTHENIA [None]
